FAERS Safety Report 21129253 (Version 1)
Quarter: 2022Q3

REPORT INFORMATION
  Report Type: Spontaneous
  Country: US (occurrence: None)
  Receive Date: 20220725
  Receipt Date: 20220725
  Transmission Date: 20221026
  Serious: No
  Sender: FDA-Public Use
  Company Number: 2022A252434

PATIENT
  Sex: Male

DRUGS (1)
  1. FARXIGA [Suspect]
     Active Substance: DAPAGLIFLOZIN PROPANEDIOL
     Route: 048

REACTIONS (6)
  - Pain [Unknown]
  - Blood glucose fluctuation [Unknown]
  - Cardiac disorder [Unknown]
  - Urinary tract infection [Unknown]
  - Type 2 diabetes mellitus [Unknown]
  - Kidney infection [Unknown]
